FAERS Safety Report 16821578 (Version 2)
Quarter: 2020Q1

REPORT INFORMATION
  Report Type: Report from Study
  Country: JP (occurrence: JP)
  Receive Date: 20190918
  Receipt Date: 20200318
  Transmission Date: 20200409
  Serious: Yes (Other)
  Sender: FDA-Public Use
  Company Number: JP-ACTELION-A-CH2017-156320

PATIENT
  Age: 74 Year
  Sex: Female

DRUGS (17)
  1. PROSTANDIN [Concomitant]
  2. TRACLEER [Suspect]
     Active Substance: BOSENTAN
     Dosage: 62.5 MG, QD
     Route: 048
     Dates: start: 20170131
  3. HIRUDOID [Concomitant]
     Active Substance: GLYCOSAMINOGLYCANS
  4. GEBEN [Concomitant]
     Active Substance: SILVER SULFADIAZINE
  5. LOCOID [Concomitant]
     Active Substance: HYDROCORTISONE BUTYRATE
  6. RECLAST [Concomitant]
     Active Substance: ZOLEDRONIC ACID
  7. TRACLEER [Suspect]
     Active Substance: BOSENTAN
     Indication: SCLERODERMA ASSOCIATED DIGITAL ULCER
     Dosage: 62.5 MG, BID
     Route: 048
     Dates: start: 20161227, end: 20170130
  8. CALONAL [Concomitant]
     Active Substance: ACETAMINOPHEN
  9. REVATIO [Concomitant]
     Active Substance: SILDENAFIL CITRATE
  10. ACTONEL [Concomitant]
     Active Substance: RISEDRONATE SODIUM
  11. TAKEPRON [Concomitant]
     Active Substance: LANSOPRAZOLE
  12. ALFAROL [Concomitant]
     Active Substance: ALFACALCIDOL
  13. JUVELA N [Concomitant]
     Active Substance: TOCOPHERYL NICOTINATE, D-.ALPHA.
  14. JUVELA [Concomitant]
     Active Substance: .ALPHA.-TOCOPHEROL\RETINOL
  15. TRACLEER [Suspect]
     Active Substance: BOSENTAN
     Dosage: 62.5 MG, QD
     Route: 048
     Dates: start: 20161122, end: 20161226
  16. U-PASTA [Concomitant]
  17. AZUNOL [Concomitant]

REACTIONS (8)
  - Haemoptysis [Recovering/Resolving]
  - Diarrhoea [Recovered/Resolved]
  - Concomitant disease aggravated [Recovering/Resolving]
  - Skin erosion [Recovered/Resolved]
  - Pruritus [Recovering/Resolving]
  - Skin infection [Recovered/Resolved]
  - Therapeutic embolisation [Recovering/Resolving]
  - Erythema [Recovered/Resolved]

NARRATIVE: CASE EVENT DATE: 20170117
